FAERS Safety Report 25023581 (Version 1)
Quarter: 2025Q1

REPORT INFORMATION
  Report Type: Spontaneous
  Country: CN (occurrence: CN)
  Receive Date: 20250228
  Receipt Date: 20250228
  Transmission Date: 20250408
  Serious: Yes (Hospitalization)
  Sender: B BRAUN
  Company Number: CN-B.Braun Medical Inc.-2171974

PATIENT
  Age: 57 Year
  Sex: Female

DRUGS (1)
  1. NUTRILIPID I.V. FAT EMULSION [Suspect]
     Active Substance: SOYBEAN OIL
     Indication: Nutritional supplementation
     Dates: start: 20250203, end: 20250206

REACTIONS (1)
  - Hypokalaemia [Recovering/Resolving]
